FAERS Safety Report 9518937 (Version 2)
Quarter: 2013Q3

REPORT INFORMATION
  Report Type: Spontaneous
  Country: US (occurrence: US)
  Receive Date: 20130912
  Receipt Date: 20130918
  Transmission Date: 20140515
  Serious: No
  Sender: FDA-Public Use
  Company Number: US-PFIZER INC-2013260101

PATIENT
  Age: 59 Year
  Sex: Female
  Weight: 57.14 kg

DRUGS (4)
  1. LEVOTHYROXINE SODIUM [Suspect]
     Indication: THYROID HORMONE REPLACEMENT THERAPY
     Dosage: 75 UG, UNK
  2. LEVOTHYROXINE SODIUM [Suspect]
     Dosage: 50 UG, UNK
  3. SYNTHROID [Suspect]
     Dosage: 75 UG, UNK
  4. SYNTHROID [Suspect]
     Dosage: 50 UG, UNK

REACTIONS (4)
  - Arrhythmia [Unknown]
  - Palpitations [Unknown]
  - Lethargy [Unknown]
  - Feeling abnormal [Unknown]
